FAERS Safety Report 7586396-0 (Version None)
Quarter: 2011Q3

REPORT INFORMATION
  Report Type: 
  Country: None (occurrence: None)
  Receive Date: 20110701
  Receipt Date: 20110622
  Transmission Date: 20111222
  Serious: Yes (Other)
  Sender: FDA-Public Use
  Company Number: A0933932A

PATIENT

DRUGS (1)
  1. ADVAIR DISKUS 100/50 [Suspect]
     Route: 055
     Dates: start: 20060101

REACTIONS (5)
  - CHEST PAIN [None]
  - APPARENT DEATH [None]
  - DYSPNOEA [None]
  - CHEST DISCOMFORT [None]
  - PAIN [None]
